FAERS Safety Report 24296314 (Version 5)
Quarter: 2024Q4

REPORT INFORMATION
  Report Type: Spontaneous
  Country: JP (occurrence: JP)
  Receive Date: 20240909
  Receipt Date: 20241209
  Transmission Date: 20250114
  Serious: Yes (Life-Threatening, Hospitalization, Other)
  Sender: AMGEN
  Company Number: JP-KYOWAKIRIN-2024KK019706

PATIENT
  Age: 64 Year
  Sex: Female

DRUGS (13)
  1. PEGFILGRASTIM [Suspect]
     Active Substance: PEGFILGRASTIM
     Indication: Colony stimulating factor therapy
     Dosage: 3.6 MG
     Route: 058
     Dates: start: 20240807, end: 20240807
  2. EPIRUBICIN HYDROCHLORIDE [Suspect]
     Active Substance: EPIRUBICIN HYDROCHLORIDE
     Indication: Breast cancer
     Dosage: 90 MG/M2, 1X/3 WEEKS
     Route: 042
     Dates: start: 20240806, end: 20240806
  3. CYCLOPHOSPHAMIDE [Suspect]
     Active Substance: CYCLOPHOSPHAMIDE
     Indication: Breast cancer
     Dosage: 600 MG/M2, 1X/3 WEEKS
     Route: 042
     Dates: start: 20240806, end: 20240806
  4. CEFEPIME HYDROCHLORIDE [Suspect]
     Active Substance: CEFEPIME HYDROCHLORIDE
     Indication: Febrile neutropenia
     Dosage: 1 G
     Route: 042
     Dates: start: 20240813, end: 20240813
  5. CEFEPIME HYDROCHLORIDE [Suspect]
     Active Substance: CEFEPIME HYDROCHLORIDE
     Dosage: 1 G
     Route: 042
     Dates: start: 20240818, end: 20240818
  6. FILGRASTIM [Concomitant]
     Active Substance: FILGRASTIM
     Indication: Febrile neutropenia
     Dosage: 75 MG, QD
     Route: 058
     Dates: start: 20240813, end: 20240815
  7. KEYTRUDA [Concomitant]
     Active Substance: PEMBROLIZUMAB
     Indication: Breast cancer
     Dosage: 200 MG, 1X/3 WEEKS
     Route: 042
     Dates: start: 20240430
  8. DEXAMETHASONE SODIUM PHOSPHATE [Concomitant]
     Active Substance: DEXAMETHASONE SODIUM PHOSPHATE
     Indication: Nausea
     Dosage: 6.6 MG, 1X/WEEK
     Route: 042
     Dates: start: 20240430, end: 20240723
  9. DEXAMETHASONE SODIUM PHOSPHATE [Concomitant]
     Active Substance: DEXAMETHASONE SODIUM PHOSPHATE
     Dosage: 9.9 MG, 1X/3 WEEKS
     Route: 042
     Dates: start: 20240806, end: 20240806
  10. PALONOSETRON [Concomitant]
     Active Substance: PALONOSETRON
     Indication: Nausea
     Dosage: 0.75 MG, 1X/3 WEEKS
     Route: 042
     Dates: start: 20240806, end: 20240806
  11. FOSNETUPITANT CHLORIDE HYDROCHLORIDE [Concomitant]
     Active Substance: FOSNETUPITANT CHLORIDE HYDROCHLORIDE
     Indication: Nausea
     Dosage: 235 MG, 1X/3 WEEKS
     Route: 042
     Dates: start: 20240806, end: 20240806
  12. OLANZAPINE [Concomitant]
     Active Substance: OLANZAPINE
     Indication: Nausea
     Dosage: 5 MG, QD
     Route: 048
     Dates: start: 20240806, end: 20240811
  13. DECADRON [Concomitant]
     Active Substance: DEXAMETHASONE
     Indication: Nausea
     Dosage: 4 MG, BID
     Route: 048
     Dates: start: 20240807, end: 20240809

REACTIONS (4)
  - Febrile neutropenia [Recovered/Resolved]
  - Interstitial lung disease [Recovering/Resolving]
  - Drug ineffective [Unknown]
  - Colony stimulating factor therapy [Unknown]

NARRATIVE: CASE EVENT DATE: 20240813
